FAERS Safety Report 7586787-8 (Version None)
Quarter: 2011Q2

REPORT INFORMATION
  Report Type: 
  Country: None (occurrence: None)
  Receive Date: 20110603
  Receipt Date: 20110418
  Transmission Date: 20111010
  Serious: No
  Sender: FDA-Public Use
  Company Number: 2011SP017475

PATIENT
  Age: 50 Year
  Sex: Female

DRUGS (2)
  1. PROZAC [Concomitant]
  2. SAPHRIS [Suspect]
     Indication: BIPOLAR DISORDER
     Dosage: 10 MG;BID
     Dates: start: 20100414

REACTIONS (1)
  - STOMATITIS [None]
